FAERS Safety Report 13805304 (Version 1)
Quarter: 2017Q3

REPORT INFORMATION
  Report Type: Spontaneous
  Country: US (occurrence: US)
  Receive Date: 20170728
  Receipt Date: 20170728
  Transmission Date: 20171127
  Serious: Yes (Other)
  Sender: FDA-Public Use
  Company Number: US-AMGEN-USASP2017103228

PATIENT
  Age: 72 Year
  Sex: Female
  Weight: 53.52 kg

DRUGS (16)
  1. DALMANE [Concomitant]
     Active Substance: FLURAZEPAM HYDROCHLORIDE
     Indication: SLEEP DISORDER
     Dosage: 15 MG, QHS (AS NEEDED)
     Route: 048
  2. PROBIOTIC [Concomitant]
     Active Substance: PROBIOTICS NOS
     Dosage: UNK UNK, QD
     Route: 048
  3. SYNOVACIN [Concomitant]
     Dosage: 2 DF, QD
     Route: 048
  4. RESVERATROL [Concomitant]
     Active Substance: DIETARY SUPPLEMENT\RESVERATROL
     Dosage: 250 MG, QD
     Route: 048
  5. LASIX [Concomitant]
     Active Substance: FUROSEMIDE
     Dosage: 20 MG, QD
     Route: 048
  6. CITRACAL [Concomitant]
     Active Substance: CALCIUM CITRATE
     Dosage: 1 CASPULE QD
     Route: 048
  7. VITAMIN D3 [Concomitant]
     Active Substance: CHOLECALCIFEROL
     Indication: VITAMIN D DEFICIENCY
     Dosage: 1 CAPSULE QD
  8. PROLIA [Suspect]
     Active Substance: DENOSUMAB
     Indication: OSTEOPOROSIS
     Dosage: 60 MG, UNK
     Route: 065
     Dates: start: 20170119, end: 20170710
  9. MAGNESIUM CITRATE. [Concomitant]
     Active Substance: MAGNESIUM CITRATE
     Dosage: UNK UNK, QD
     Route: 048
  10. ALOE VERA [Concomitant]
     Active Substance: ALOE VERA LEAF
     Dosage: 5000 MG, QD
     Route: 048
  11. SYNTHROID [Concomitant]
     Active Substance: LEVOTHYROXINE SODIUM
     Indication: HYPOTHYROIDISM
     Dosage: 150 MUG, QD (MONDAY TO SATURDAY AND 1/2 TABLET ON SUNDAY)
  12. CITRACAL BONE DENSITY BUILDER [Concomitant]
     Dosage: 1200 MG, QD
     Route: 048
  13. ECHINACEA [Concomitant]
     Active Substance: ECHINACEA, UNSPECIFIED
     Dosage: 125 MG, QD
     Route: 048
  14. ALEVE [Suspect]
     Active Substance: NAPROXEN SODIUM
     Indication: MUSCULOSKELETAL PAIN
     Dosage: UNK UNK, QD FOR 10 DAYS
     Route: 065
  15. BIOTIN [Concomitant]
     Active Substance: BIOTIN
     Dosage: 5 MG, QD
     Route: 048
  16. COENZYME Q10 [Concomitant]
     Active Substance: UBIDECARENONE
     Dosage: 100 MG, QD
     Route: 048

REACTIONS (9)
  - Musculoskeletal pain [Not Recovered/Not Resolved]
  - Mammogram [Unknown]
  - Interstitial granulomatous dermatitis [Not Recovered/Not Resolved]
  - Vitamin D deficiency [Unknown]
  - Temporal arteritis [Unknown]
  - Oedema [Unknown]
  - Lichenoid keratosis [Not Recovered/Not Resolved]
  - Alopecia [Unknown]
  - Arthropathy [Unknown]

NARRATIVE: CASE EVENT DATE: 20170315
